FAERS Safety Report 6920381-4 (Version None)
Quarter: 2010Q3

REPORT INFORMATION
  Report Type: 
  Country: None (occurrence: None)
  Receive Date: 20100804
  Receipt Date: 20100211
  Transmission Date: 20110219
  Serious: No
  Sender: FDA-Public Use
  Company Number: 2010-0521

PATIENT
  Age: 41 Year
  Sex: Male
  Weight: 99.7 kg

DRUGS (4)
  1. SOMATULINE DEPOT [Suspect]
     Indication: ACROMEGALY
     Dosage: 60 MG (60 MG,1 IN 30 D), SUBCUTANEOUS
     Route: 058
     Dates: start: 20100203
  2. SYNTHROID [Concomitant]
  3. NEXIUM [Concomitant]
  4. PREDNISONE [Concomitant]

REACTIONS (6)
  - ABDOMINAL PAIN UPPER [None]
  - DIARRHOEA [None]
  - HAEMORRHOIDAL HAEMORRHAGE [None]
  - NAUSEA [None]
  - RECTAL HAEMORRHAGE [None]
  - VOMITING [None]
